FAERS Safety Report 9112672 (Version 1)
Quarter: 2013Q1

REPORT INFORMATION
  Report Type: Spontaneous
  Country: US (occurrence: US)
  Receive Date: 20130211
  Receipt Date: 20130211
  Transmission Date: 20140127
  Serious: No
  Sender: FDA-Public Use
  Company Number: US-009507513-1302USA001627

PATIENT
  Sex: Male

DRUGS (2)
  1. DULERA [Suspect]
     Indication: BRONCHITIS
     Dosage: 1 PUFF AT A TIME TWICE DAILY, INHALER
     Route: 055
     Dates: start: 20130129
  2. DULERA [Suspect]
     Dosage: 2 PUFF
     Route: 055
     Dates: start: 20130203

REACTIONS (7)
  - Agitation [Not Recovered/Not Resolved]
  - Dizziness [Not Recovered/Not Resolved]
  - Nervousness [Not Recovered/Not Resolved]
  - Blood pressure increased [Not Recovered/Not Resolved]
  - Chest pain [Not Recovered/Not Resolved]
  - Chest discomfort [Not Recovered/Not Resolved]
  - Heart rate irregular [Not Recovered/Not Resolved]
